FAERS Safety Report 25763432 (Version 1)
Quarter: 2025Q3

REPORT INFORMATION
  Report Type: Report from Study
  Country: CN (occurrence: CN)
  Receive Date: 20250905
  Receipt Date: 20250905
  Transmission Date: 20251021
  Serious: Yes (Death)
  Sender: ROCHE
  Company Number: CN-ROCHE-10000380066

PATIENT
  Age: 75 Year
  Sex: Male

DRUGS (2)
  1. ATEZOLIZUMAB [Suspect]
     Active Substance: ATEZOLIZUMAB
     Indication: Hepatic cancer
     Route: 042
     Dates: start: 20240608
  2. BEVACIZUMAB [Suspect]
     Active Substance: BEVACIZUMAB
     Indication: Hepatic cancer
     Route: 042
     Dates: start: 20240608

REACTIONS (1)
  - Death [Fatal]

NARRATIVE: CASE EVENT DATE: 20250401
